FAERS Safety Report 9293597 (Version 1)
Quarter: 2013Q2

REPORT INFORMATION
  Report Type: Spontaneous
  Country: US (occurrence: US)
  Receive Date: 20130516
  Receipt Date: 20130516
  Transmission Date: 20140414
  Serious: Yes (Other)
  Sender: FDA-Public Use
  Company Number: US-ASTRAZENECA-2013SE32332

PATIENT
  Sex: Female

DRUGS (1)
  1. BRILINTA [Suspect]
     Indication: STENT PLACEMENT
     Dosage: UNKNOWN
     Route: 048
     Dates: start: 2013

REACTIONS (3)
  - Rectal haemorrhage [Unknown]
  - Gastrointestinal haemorrhage [Unknown]
  - Vomiting [Unknown]
